FAERS Safety Report 8866196 (Version 4)
Quarter: 2013Q1

REPORT INFORMATION
  Report Type: Spontaneous
  Country: US (occurrence: US)
  Receive Date: 20121025
  Receipt Date: 20130220
  Transmission Date: 20140127
  Serious: Yes (Life-Threatening, Hospitalization, Other)
  Sender: FDA-Public Use
  Company Number: PHEH2012US020742

PATIENT
  Age: 56 None
  Sex: Male

DRUGS (1)
  1. GILENYA [Suspect]
     Indication: MULTIPLE SCLEROSIS
     Dosage: 0.5 MG, QD
     Route: 048
     Dates: start: 20121004

REACTIONS (8)
  - Apparent death [Recovering/Resolving]
  - Cerebrovascular accident [Recovering/Resolving]
  - Heart rate decreased [Recovered/Resolved]
  - Sepsis [Recovering/Resolving]
  - Gangrene [Recovering/Resolving]
  - Atrial flutter [Unknown]
  - Procedural pain [Recovering/Resolving]
  - Palpitations [Recovering/Resolving]
